FAERS Safety Report 19002255 (Version 1)
Quarter: 2021Q1

REPORT INFORMATION
  Report Type: Spontaneous
  Country: US (occurrence: US)
  Receive Date: 20210311
  Receipt Date: 20210311
  Transmission Date: 20210420
  Serious: No
  Sender: FDA-Public Use
  Company Number: None

PATIENT
  Age: 50 Year
  Sex: Male

DRUGS (1)
  1. OTEZLA [Suspect]
     Active Substance: APREMILAST
     Indication: PSORIASIS
     Route: 048
     Dates: start: 20200513

REACTIONS (4)
  - Skin burning sensation [None]
  - Pruritus [None]
  - Drug ineffective [None]
  - Erythema [None]

NARRATIVE: CASE EVENT DATE: 202102
